FAERS Safety Report 16250788 (Version 2)
Quarter: 2019Q2

REPORT INFORMATION
  Report Type: Spontaneous
  Country: US (occurrence: US)
  Receive Date: 20190429
  Receipt Date: 20190529
  Transmission Date: 20190711
  Serious: Yes (Other)
  Sender: FDA-Public Use
  Company Number: US-BAYER-2019-059275

PATIENT
  Sex: Female
  Weight: 74.38 kg

DRUGS (2)
  1. MIRENA [Suspect]
     Active Substance: LEVONORGESTREL
  2. MIRENA [Suspect]
     Active Substance: LEVONORGESTREL
     Indication: CONTRACEPTION
     Dosage: 20 MCG/24HR, CONT
     Route: 015
     Dates: start: 20130815, end: 20190226

REACTIONS (5)
  - Complication of device removal [None]
  - Device breakage [None]
  - Device difficult to use [None]
  - Embedded device [None]
  - Wrong technique in device usage process [None]

NARRATIVE: CASE EVENT DATE: 2019
